FAERS Safety Report 16448783 (Version 5)
Quarter: 2019Q3

REPORT INFORMATION
  Report Type: Spontaneous
  Country: PT (occurrence: PT)
  Receive Date: 20190619
  Receipt Date: 20190731
  Transmission Date: 20191004
  Serious: Yes (Hospitalization, Other)
  Sender: FDA-Public Use
  Company Number: PT-ACCORD-133036

PATIENT
  Age: 48 Year
  Sex: Female

DRUGS (6)
  1. TACROLIMUS. [Interacting]
     Active Substance: TACROLIMUS
     Indication: IMMUNOSUPPRESSION
     Dosage: DOSES WERE ADJUSTED
     Route: 048
     Dates: start: 2016, end: 201708
  2. EVEROLIMUS. [Interacting]
     Active Substance: EVEROLIMUS
     Indication: IMMUNOSUPPRESSION
     Dosage: LATER RE-INTRODUCED
  3. PREDNISOLONE. [Suspect]
     Active Substance: PREDNISOLONE
     Indication: IMMUNOSUPPRESSION
     Dates: start: 2016
  4. LEVOFLOXACIN. [Concomitant]
     Active Substance: LEVOFLOXACIN
     Indication: STAPHYLOCOCCAL INFECTION
  5. FLUCLOXACILLIN [Concomitant]
     Active Substance: FLUCLOXACILLIN
     Indication: STAPHYLOCOCCAL INFECTION
  6. MYCOPHENOLIC ACID. [Suspect]
     Active Substance: MYCOPHENOLIC ACID
     Indication: IMMUNOSUPPRESSION
     Dates: start: 2016

REACTIONS (13)
  - Thrombotic microangiopathy [Recovered/Resolved]
  - Haemodynamic instability [Unknown]
  - Subcutaneous abscess [Unknown]
  - Folliculitis [Unknown]
  - Drug interaction [Unknown]
  - Fatigue [Unknown]
  - Aphthous ulcer [Unknown]
  - Aortic thrombosis [Unknown]
  - Leukopenia [Recovered/Resolved]
  - Staphylococcal infection [Recovered/Resolved]
  - Pericardial effusion [Unknown]
  - Lung infection [Recovered/Resolved]
  - Hypochromic anaemia [Unknown]
